FAERS Safety Report 16580077 (Version 1)
Quarter: 2019Q3

REPORT INFORMATION
  Report Type: Spontaneous
  Country: US (occurrence: US)
  Receive Date: 20190716
  Receipt Date: 20190716
  Transmission Date: 20191004
  Serious: No
  Sender: FDA-Public Use
  Company Number: US-MYLANLABS-2019M1062337

PATIENT
  Sex: Female

DRUGS (1)
  1. TIMOLOL. [Suspect]
     Active Substance: TIMOLOL
     Indication: ANXIETY
     Dosage: 10 MILLIGRAM, BID
     Route: 065

REACTIONS (2)
  - Off label use [Recovered/Resolved]
  - Product availability issue [Unknown]
